FAERS Safety Report 7176929-0 (Version None)
Quarter: 2010Q4

REPORT INFORMATION
  Report Type: 
  Country: None (occurrence: None)
  Receive Date: 20101220
  Receipt Date: 20101209
  Transmission Date: 20110411
  Serious: Yes (Hospitalization)
  Sender: FDA-Public Use
  Company Number: DE-ELI_LILLY_AND_COMPANY-DE201007003543

PATIENT
  Sex: Female
  Weight: 85 kg

DRUGS (6)
  1. GEMCITABINE HCL [Suspect]
     Indication: BREAST CANCER METASTATIC
     Dosage: 1000 MG/M2 ON DAY 1 AND DAY 8 EVERY 3 WEEKS
     Route: 042
     Dates: start: 20100528
  2. VINFLUNINE [Suspect]
     Indication: BREAST CANCER METASTATIC
     Dosage: 320 MG/M2, ON DAY 1 EVERY 3 WEEKSL
     Route: 042
     Dates: start: 20100528
  3. BERLTHYROX [Concomitant]
     Dosage: UNK, UNKNOWN
     Route: 065
  4. RAMIPRIL [Concomitant]
  5. TRIAMTEREN [Concomitant]
  6. BONDRONAT /01304701/ [Concomitant]

REACTIONS (4)
  - CONSTIPATION [None]
  - GENERAL PHYSICAL HEALTH DETERIORATION [None]
  - MUCOSAL INFLAMMATION [None]
  - NEUTROPENIA [None]
